FAERS Safety Report 9181014 (Version 2)
Quarter: 2013Q2

REPORT INFORMATION
  Report Type: Spontaneous
  Country: US (occurrence: US)
  Receive Date: 20130322
  Receipt Date: 20130409
  Transmission Date: 20140414
  Serious: Yes (Death)
  Sender: FDA-Public Use
  Company Number: PHEH2013US006635

PATIENT
  Sex: Female

DRUGS (1)
  1. EXELON [Suspect]
     Indication: DEMENTIA ALZHEIMER^S TYPE

REACTIONS (4)
  - Death [Fatal]
  - Atrophy [Recovered/Resolved]
  - Abasia [Recovered/Resolved]
  - Local swelling [Recovered/Resolved]
